FAERS Safety Report 5386009-2 (Version None)
Quarter: 2007Q3

REPORT INFORMATION
  Report Type: 
  Country: None (occurrence: None)
  Receive Date: 20070710
  Receipt Date: 20070625
  Transmission Date: 20080115
  Serious: Yes (Other)
  Sender: FDA-Public Use
  Company Number: OSCN-NO-0706S-0254

PATIENT
  Age: 51 Year
  Sex: Female

DRUGS (1)
  1. OMNISCAN [Suspect]
     Indication: SHUNT OCCLUSION
     Dosage: 20 ML, SINGLE DOSE, I.V.
     Route: 042
     Dates: start: 20070101, end: 20070101

REACTIONS (6)
  - ARTHRALGIA [None]
  - MUSCULOSKELETAL STIFFNESS [None]
  - NEPHROGENIC SYSTEMIC FIBROSIS [None]
  - PAIN IN EXTREMITY [None]
  - PRURITUS [None]
  - TREATMENT FAILURE [None]
